FAERS Safety Report 14754932 (Version 1)
Quarter: 2018Q2

REPORT INFORMATION
  Report Type: Spontaneous
  Country: DE (occurrence: DE)
  Receive Date: 20180413
  Receipt Date: 20180413
  Transmission Date: 20180711
  Serious: Yes (Other)
  Sender: FDA-Public Use
  Company Number: DE-CIPLA LTD.-2018DE14922

PATIENT

DRUGS (21)
  1. AVASTIN [Suspect]
     Active Substance: BEVACIZUMAB
     Indication: OVARIAN CANCER
     Dosage: 1080 MG, EVERY 3 WEEKS, THERAPY RESTARTED
     Route: 042
  2. CARBOPLATIN. [Suspect]
     Active Substance: CARBOPLATIN
     Indication: OVARIAN CANCER
     Dosage: 425 MG, EVERY 3 WEEKS, SUBSEQUENT DOSE ON 10/FEB/2016
     Route: 042
     Dates: start: 20160120
  3. CARBOPLATIN. [Suspect]
     Active Substance: CARBOPLATIN
     Dosage: 425 MG, EVERY 3 WEEKS
     Route: 042
     Dates: start: 20160323
  4. CARBOPLATIN. [Suspect]
     Active Substance: CARBOPLATIN
     Dosage: 425 MG, EVERY 3 WEEKS
     Route: 042
     Dates: start: 20160413
  5. PACLITAXEL. [Suspect]
     Active Substance: PACLITAXEL
     Dosage: 317 MG, EVERY 3 WEEKS
     Route: 042
     Dates: start: 20160302
  6. AVASTIN [Suspect]
     Active Substance: BEVACIZUMAB
     Dosage: 1080 MG, EVERY 3 WEEKS, THERAPY INTERRUPTED DUE TO WORSENING OF HYPERTENSION
     Route: 042
     Dates: start: 20160303
  7. TORASEMIDE [Concomitant]
     Active Substance: TORSEMIDE
     Indication: HYPERTENSION
     Dosage: 10 MG, UNK
     Route: 048
     Dates: start: 20160121
  8. PACLITAXEL. [Suspect]
     Active Substance: PACLITAXEL
     Dosage: 317 MG, EVERY 3 WEEKS
     Route: 042
     Dates: start: 20160323
  9. DEKRISTOL [Concomitant]
     Active Substance: CHOLECALCIFEROL
     Indication: OSTEOPOROSIS
     Dosage: 40000 IU, EVERY 1 WEEK
     Route: 048
     Dates: start: 20160203
  10. CARBOPLATIN. [Suspect]
     Active Substance: CARBOPLATIN
     Dosage: 425 MG, EVERY 3 WEEKS
     Route: 042
     Dates: start: 20160210
  11. AVASTIN [Suspect]
     Active Substance: BEVACIZUMAB
     Dosage: 1080 MG, EVERY 3 WEEKS, MOST RECENT DOSE PRIOR TO ANEMIA: 03/MAR/2016
     Route: 042
     Dates: start: 20160211
  12. SIMVASTATIN. [Concomitant]
     Active Substance: SIMVASTATIN
     Indication: HYPERCHOLESTEROLAEMIA
     Dosage: UNK, PER DAY
     Route: 048
     Dates: start: 2015
  13. DAFIRO [Concomitant]
     Active Substance: AMLODIPINE\VALSARTAN
     Dosage: 7.5 MG, PER DAY
     Route: 048
     Dates: start: 20160323
  14. OMEPRAZOL                          /00661201/ [Concomitant]
     Active Substance: OMEPRAZOLE
     Indication: DIVERTICULUM
     Dosage: UNK, PER DAY
     Route: 048
     Dates: start: 201510
  15. PACLITAXEL. [Suspect]
     Active Substance: PACLITAXEL
     Dosage: 317 MG, EVERY 3 WEEKS
     Route: 042
     Dates: start: 20160210
  16. CALCIGEN                           /00944201/ [Concomitant]
     Indication: OSTEOPOROSIS
     Dosage: 1200 MG, PER DAY
     Route: 048
     Dates: start: 20160203
  17. L-THYROXIN                         /00068002/ [Concomitant]
     Indication: PRODUCT USED FOR UNKNOWN INDICATION
     Dosage: UNK, PER DAY
     Route: 048
     Dates: start: 2013
  18. CARBOPLATIN. [Suspect]
     Active Substance: CARBOPLATIN
     Dosage: 425 MG, EVERY 3 WEEKS
     Route: 042
     Dates: start: 20160302
  19. PACLITAXEL. [Suspect]
     Active Substance: PACLITAXEL
     Indication: OVARIAN CANCER
     Dosage: 317 MG, EVERY 3 WEEKS
     Route: 042
     Dates: start: 20160120
  20. DAFIRO [Concomitant]
     Active Substance: AMLODIPINE\VALSARTAN
     Indication: HYPERTENSION
     Dosage: UNK, PER DAY
     Route: 048
     Dates: start: 2015, end: 20160322
  21. NOVAMINSULFON [Concomitant]
     Active Substance: METAMIZOLE
     Indication: PAIN
     Dosage: 1500 MG, PER DAY
     Route: 048
     Dates: start: 2015

REACTIONS (8)
  - Skin disorder [Recovered/Resolved]
  - Constipation [Recovered/Resolved]
  - Hypertension [Recovered/Resolved]
  - Dysgeusia [Recovered/Resolved]
  - Sensory disturbance [Recovered/Resolved]
  - Protein urine present [Not Recovered/Not Resolved]
  - Abdominal pain [Recovered/Resolved]
  - Anaemia [Recovered/Resolved]

NARRATIVE: CASE EVENT DATE: 20160210
